FAERS Safety Report 11886946 (Version 4)
Quarter: 2016Q1

REPORT INFORMATION
  Report Type: Spontaneous
  Country: DE (occurrence: DE)
  Receive Date: 20160104
  Receipt Date: 20160211
  Transmission Date: 20160526
  Serious: Yes (Life-Threatening, Hospitalization, Disabling, Other)
  Sender: FDA-Public Use
  Company Number: DE-TEVA-622951GER

PATIENT
  Age: 68 Year
  Sex: Female
  Weight: 84 kg

DRUGS (2)
  1. CIPROFLOXACIN 1A PHARMA [Suspect]
     Active Substance: CIPROFLOXACIN
     Indication: INFLUENZA
     Dosage: 1000 MILLIGRAM DAILY;
     Route: 048
     Dates: start: 20151001, end: 20151005
  2. METFORMIN [Concomitant]
     Active Substance: METFORMIN HYDROCHLORIDE
     Indication: TYPE 2 DIABETES MELLITUS
     Route: 048

REACTIONS (12)
  - Oedematous pancreatitis [Unknown]
  - Malaise [Unknown]
  - Lipase increased [Not Recovered/Not Resolved]
  - General physical health deterioration [Unknown]
  - Nausea [Not Recovered/Not Resolved]
  - Asthenia [Unknown]
  - Pancreatic enzymes increased [Unknown]
  - Hyperglycaemia [Not Recovered/Not Resolved]
  - Abdominal discomfort [Not Recovered/Not Resolved]
  - Weight decreased [Unknown]
  - Myalgia [Not Recovered/Not Resolved]
  - Enzyme abnormality [Unknown]

NARRATIVE: CASE EVENT DATE: 2015
